FAERS Safety Report 18347563 (Version 1)
Quarter: 2020Q4

REPORT INFORMATION
  Report Type: Spontaneous
  Country: FR (occurrence: FR)
  Receive Date: 20201006
  Receipt Date: 20201006
  Transmission Date: 20210114
  Serious: Yes (Hospitalization)
  Sender: FDA-Public Use
  Company Number: FR-SUN PHARMACEUTICAL INDUSTRIES LTD-2020RR-263385

PATIENT
  Age: 42 Year
  Sex: Male

DRUGS (5)
  1. ATORVASTATINE [Suspect]
     Active Substance: ATORVASTATIN
     Indication: HYPERCHOLESTEROLAEMIA
     Dosage: 100 MILLIGRAM, DAILY
     Route: 048
     Dates: start: 20200702, end: 20200709
  2. NEORAL [Concomitant]
     Active Substance: CYCLOSPORINE
     Indication: RENAL TRANSPLANT
     Dosage: ()
     Route: 048
  3. LOXAPAC [Concomitant]
     Active Substance: LOXAPINE
     Indication: DELUSIONAL DISORDER, PERSECUTORY TYPE
     Dosage: 150 MILLIGRAM, DAILY
     Route: 048
     Dates: start: 20200707, end: 20200711
  4. RISPERIDONE. [Concomitant]
     Active Substance: RISPERIDONE
     Indication: DELUSIONAL DISORDER, PERSECUTORY TYPE
     Dosage: 8 MILLIGRAM, DAILY
     Route: 048
     Dates: start: 20200706, end: 20200709
  5. NATRIXAM [Concomitant]
     Active Substance: AMLODIPINE\INDAPAMIDE
     Indication: HYPERTENSION
     Dosage: 1 DOSAGE FORM, DAILY
     Route: 048
     Dates: end: 20200711

REACTIONS (5)
  - Product prescribing error [Recovered/Resolved]
  - Wrong strength [Recovered/Resolved]
  - Acute kidney injury [Recovered/Resolved]
  - Blood creatine phosphokinase increased [Recovered/Resolved]
  - Accidental overdose [Recovered/Resolved]

NARRATIVE: CASE EVENT DATE: 202007
